FAERS Safety Report 6764535-9 (Version None)
Quarter: 2010Q2

REPORT INFORMATION
  Report Type: 
  Country: None (occurrence: None)
  Receive Date: 20100609
  Receipt Date: 20100405
  Transmission Date: 20101027
  Serious: No
  Sender: FDA-Public Use
  Company Number: 2010008418

PATIENT
  Age: 59 Year
  Sex: Female

DRUGS (2)
  1. ZYRTEC [Suspect]
     Indication: DRUG USE FOR UNKNOWN INDICATION
     Dosage: UNSPECIFIED TOPICAL
     Route: 061
  2. ZOLEDRONIC ACID [Suspect]
     Indication: DRUG USE FOR UNKNOWN INDICATION

REACTIONS (2)
  - EYE SWELLING [None]
  - INCORRECT ROUTE OF DRUG ADMINISTRATION [None]
